FAERS Safety Report 11637534 (Version 1)
Quarter: 2015Q4

REPORT INFORMATION
  Report Type: Report from Study
  Country: PH (occurrence: PH)
  Receive Date: 20151016
  Receipt Date: 20151016
  Transmission Date: 20160304
  Serious: Yes (Hospitalization)
  Sender: FDA-Public Use
  Company Number: PH-ROCHE-605611

PATIENT
  Age: 52 Year
  Sex: Female
  Weight: 55 kg

DRUGS (5)
  1. TRASTUZUMAB [Suspect]
     Active Substance: TRASTUZUMAB
     Dosage: MAINTENANCE DOSE
     Route: 042
  2. PERTUZUMAB [Suspect]
     Active Substance: PERTUZUMAB
     Indication: BREAST CANCER METASTATIC
     Dosage: LOADING DOSE
     Route: 042
     Dates: start: 20081217, end: 20081217
  3. DOCETAXEL. [Suspect]
     Active Substance: DOCETAXEL
     Indication: BREAST CANCER METASTATIC
     Dosage: DATE OF LAST DOSE PRIOR TO SAE: 18/DEC/2008.
     Route: 042
     Dates: start: 20081218
  4. PERTUZUMAB [Suspect]
     Active Substance: PERTUZUMAB
     Dosage: MAINTANENCE DOSE
     Route: 042
  5. TRASTUZUMAB [Suspect]
     Active Substance: TRASTUZUMAB
     Indication: BREAST CANCER METASTATIC
     Dosage: LOADING DOSE?DATE OF LAST DOSE PRIOR TO SAE: 18/DEC/2008.
     Route: 042
     Dates: start: 20081218

REACTIONS (1)
  - Diarrhoea infectious [Recovered/Resolved]

NARRATIVE: CASE EVENT DATE: 20081222
